FAERS Safety Report 8442380-6 (Version None)
Quarter: 2012Q2

REPORT INFORMATION
  Report Type: 
  Country: None (occurrence: None)
  Receive Date: 20120615
  Receipt Date: 20120109
  Transmission Date: 20120825
  Serious: No
  Sender: FDA-Public Use
  Company Number: US-NOVEN-12US003899

PATIENT
  Sex: Female
  Weight: 26.304 kg

DRUGS (1)
  1. DAYTRANA [Suspect]
     Indication: ATTENTION DEFICIT/HYPERACTIVITY DISORDER
     Dosage: 10 MG, QD FOR 6 TO 9 HOURS
     Route: 062
     Dates: start: 20090101

REACTIONS (2)
  - INCORRECT DRUG ADMINISTRATION DURATION [None]
  - NO ADVERSE EVENT [None]
